FAERS Safety Report 6756080-1 (Version None)
Quarter: 2010Q2

REPORT INFORMATION
  Report Type: 
  Country: None (occurrence: None)
  Receive Date: 20100604
  Receipt Date: 20100527
  Transmission Date: 20101027
  Serious: Yes (Hospitalization, Other)
  Sender: FDA-Public Use
  Company Number: US-PFIZER INC-2010040099

PATIENT
  Sex: Male
  Weight: 105.22 kg

DRUGS (4)
  1. LIPITOR [Suspect]
     Indication: BLOOD CHOLESTEROL INCREASED
     Dosage: 10 MG, 1X/DAY
     Route: 048
     Dates: start: 20020101
  2. ACETYLSALICYLIC ACID [Concomitant]
     Indication: ANTIPLATELET THERAPY
     Dosage: 81 MG, 1X/DAY
     Route: 048
  3. ACETYLSALICYLIC ACID [Concomitant]
     Indication: CARDIAC DISORDER
  4. VESICARE [Concomitant]
     Indication: MICTURITION DISORDER
     Dosage: 10 MG, 1X/DAY
     Route: 048

REACTIONS (7)
  - ASTHENIA [None]
  - ASTHMA [None]
  - FATIGUE [None]
  - MUSCULAR WEAKNESS [None]
  - MYALGIA [None]
  - NEUROPATHY PERIPHERAL [None]
  - URINARY TRACT INFECTION [None]
